FAERS Safety Report 9436973 (Version 1)
Quarter: 2013Q3

REPORT INFORMATION
  Report Type: Spontaneous
  Country: US (occurrence: US)
  Receive Date: 20130802
  Receipt Date: 20130802
  Transmission Date: 20140515
  Serious: Yes (Other)
  Sender: FDA-Public Use
  Company Number: US-BAYER-2013-091750

PATIENT
  Age: 45 Year
  Sex: Female

DRUGS (1)
  1. MIRENA [Suspect]
     Indication: CONTRACEPTION
     Dosage: UNK
     Route: 015
     Dates: start: 20091208, end: 20130206

REACTIONS (55)
  - Insomnia [Recovered/Resolved]
  - Panic attack [Recovered/Resolved]
  - Depressed mood [Recovered/Resolved]
  - Muscle spasms [Recovered/Resolved]
  - Contusion [Recovered/Resolved]
  - Breast disorder female [Recovered/Resolved]
  - Breast enlargement [Recovered/Resolved]
  - Breast atrophy [Recovered/Resolved]
  - Axillary mass [Recovered/Resolved]
  - Axillary mass [Recovered/Resolved]
  - Paraesthesia [Recovered/Resolved]
  - Dizziness [Recovered/Resolved]
  - Vaginal discharge [Recovered/Resolved]
  - Back pain [Recovered/Resolved]
  - Feeling hot [Recovered/Resolved]
  - Abdominal pain [Recovered/Resolved]
  - Chest pain [Recovered/Resolved]
  - Oedema peripheral [Recovered/Resolved]
  - Musculoskeletal stiffness [Recovered/Resolved]
  - Joint range of motion decreased [Recovered/Resolved]
  - Weight increased [Not Recovered/Not Resolved]
  - Dizziness [Recovered/Resolved]
  - Disturbance in attention [Recovered/Resolved]
  - Memory impairment [Recovered/Resolved]
  - Joint stiffness [Recovered/Resolved]
  - Joint swelling [Recovered/Resolved]
  - Abdominal distension [Not Recovered/Not Resolved]
  - Feeling hot [Recovered/Resolved]
  - Gastrooesophageal reflux disease [Recovered/Resolved]
  - Retching [Recovered/Resolved]
  - Abdominal distension [Not Recovered/Not Resolved]
  - Dyspepsia [Recovered/Resolved]
  - Frequent bowel movements [Recovered/Resolved]
  - Headache [Recovered/Resolved]
  - Abnormal sensation in eye [Recovered/Resolved]
  - Eye pain [Recovered/Resolved]
  - Chest pain [Recovered/Resolved]
  - Neck pain [Recovered/Resolved]
  - Nausea [Recovered/Resolved]
  - Weight loss poor [Not Recovered/Not Resolved]
  - Malaise [Recovered/Resolved]
  - Memory impairment [Recovered/Resolved]
  - Feeling abnormal [Recovered/Resolved]
  - Anxiety [Recovered/Resolved]
  - Sleep disorder [Recovered/Resolved]
  - Fatigue [Recovered/Resolved]
  - Abnormal dreams [Recovered/Resolved]
  - Nocturia [Recovered/Resolved]
  - Amenorrhoea [Recovered/Resolved]
  - Menstruation irregular [Recovered/Resolved]
  - Nausea [Recovered/Resolved]
  - Musculoskeletal stiffness [Recovered/Resolved]
  - Abdominal distension [Not Recovered/Not Resolved]
  - Dyspepsia [Recovered/Resolved]
  - Menopausal symptoms [Recovered/Resolved]
